FAERS Safety Report 11935918 (Version 3)
Quarter: 2016Q4

REPORT INFORMATION
  Report Type: Spontaneous
  Country: US (occurrence: US)
  Receive Date: 20160121
  Receipt Date: 20161019
  Transmission Date: 20170206
  Serious: No
  Sender: FDA-Public Use
  Company Number: US-OTSUKA-2016_000015

PATIENT
  Age: 34 Year
  Sex: Female

DRUGS (2)
  1. VITAMINS [Concomitant]
     Active Substance: VITAMINS
     Indication: PRODUCT USED FOR UNKNOWN INDICATION
     Dosage: UNK
     Route: 065
  2. REXULTI [Suspect]
     Active Substance: BREXPIPRAZOLE
     Indication: SLEEP DISORDER
     Dosage: 1 MG, QD (AT NIGHT)
     Route: 065
     Dates: start: 201512

REACTIONS (4)
  - Euphoric mood [Not Recovered/Not Resolved]
  - Distractibility [Not Recovered/Not Resolved]
  - Off label use [Unknown]
  - Sensory disturbance [Not Recovered/Not Resolved]

NARRATIVE: CASE EVENT DATE: 201512
